FAERS Safety Report 8161598-3 (Version None)
Quarter: 2012Q1

REPORT INFORMATION
  Report Type: 
  Country: None (occurrence: None)
  Receive Date: 20120224
  Receipt Date: 20120217
  Transmission Date: 20120608
  Serious: Yes (Hospitalization, Other)
  Sender: FDA-Public Use
  Company Number: US-BAYER-2011-085314

PATIENT
  Age: 24 Year
  Sex: Female
  Weight: 68.027 kg

DRUGS (2)
  1. DROSPIRENONE AND ETHINYL ESTRADIOL [Suspect]
     Dosage: UNK
     Dates: start: 20070101, end: 20100101
  2. YASMIN [Suspect]
     Dosage: UNK
     Dates: start: 20070101, end: 20100101

REACTIONS (8)
  - ANXIETY [None]
  - ANHEDONIA [None]
  - INJURY [None]
  - GENERAL PHYSICAL HEALTH DETERIORATION [None]
  - EMOTIONAL DISTRESS [None]
  - GALLBLADDER DISORDER [None]
  - CHOLECYSTECTOMY [None]
  - PAIN [None]
